FAERS Safety Report 9191035 (Version 2)
Quarter: 2013Q2

REPORT INFORMATION
  Report Type: Spontaneous
  Country: US (occurrence: None)
  Receive Date: 20120703
  Receipt Date: 20121031
  Transmission Date: 20140414
  Serious: Yes (Other)
  Sender: FDA-Public Use
  Company Number: PHEH2012US008137

PATIENT
  Age: 63 Year
  Sex: Female

DRUGS (6)
  1. GILENYA [Suspect]
     Indication: MULTIPLE SCLEROSIS
     Route: 048
     Dates: start: 201102, end: 201204
  2. LEVOTHYROXINE SODIUM (LEVOTHYROXINE SODIUM) [Concomitant]
  3. PRAVASTATIN SODIUM (PRAVASTATIN SODIUM) [Concomitant]
  4. PANTOPRAZOLE SODIUM (PANTOPRAZOLE SODIUM) [Concomitant]
  5. VALACICLOVIR (VALACICLOVIR) [Concomitant]
  6. VITAMINS NOS (VITAMINS NOS) [Concomitant]

REACTIONS (8)
  - Herpes zoster [None]
  - White blood cell count decreased [None]
  - Decreased immune responsiveness [None]
  - Erythema [None]
  - Burning sensation [None]
  - Swelling face [None]
  - Rash [None]
  - Pain [None]
